FAERS Safety Report 11693188 (Version 3)
Quarter: 2016Q1

REPORT INFORMATION
  Report Type: Spontaneous
  Country: US (occurrence: US)
  Receive Date: 20151103
  Receipt Date: 20160307
  Transmission Date: 20160525
  Serious: No
  Sender: FDA-Public Use
  Company Number: US-GLAXOSMITHKLINE-US2015155491

PATIENT
  Age: 52 Year
  Sex: Female
  Weight: 95.69 kg

DRUGS (8)
  1. BENLYSTA [Suspect]
     Active Substance: BELIMUMAB
     Dosage: 400 MG, UNK
  2. BENLYSTA [Suspect]
     Active Substance: BELIMUMAB
     Dosage: 10 UNK, UNK
     Route: 042
  3. BENLYSTA [Suspect]
     Active Substance: BELIMUMAB
     Dosage: 14.6 MG/KG, U
     Route: 042
     Dates: start: 20151029, end: 20151029
  4. BENLYSTA [Suspect]
     Active Substance: BELIMUMAB
     Dosage: UNK
  5. BENLYSTA [Suspect]
     Active Substance: BELIMUMAB
     Indication: SYSTEMIC LUPUS ERYTHEMATOSUS
     Dosage: 400 MG, UNK
  6. BENLYSTA [Suspect]
     Active Substance: BELIMUMAB
     Dosage: 120 MG, UNK
  7. BENLYSTA [Suspect]
     Active Substance: BELIMUMAB
     Dosage: 120 MG, UNK
  8. BENLYSTA [Suspect]
     Active Substance: BELIMUMAB
     Dosage: 10 MG/KG, UNK

REACTIONS (2)
  - Incorrect dose administered [Recovered/Resolved]
  - Product preparation error [Recovered/Resolved]

NARRATIVE: CASE EVENT DATE: 20151029
